FAERS Safety Report 4742325-6 (Version None)
Quarter: 2005Q3

REPORT INFORMATION
  Report Type: 
  Country: None (occurrence: None)
  Receive Date: 20050811
  Receipt Date: 20050406
  Transmission Date: 20060218
  Serious: No
  Sender: FDA-Public Use
  Company Number: US-GLAXOSMITHKLINE-A0553009A

PATIENT
  Age: 67 Year
  Sex: Female

DRUGS (2)
  1. PAXIL CR [Suspect]
     Dosage: 12.5MG PER DAY
     Route: 048
     Dates: start: 20030101
  2. LIPITOR [Concomitant]

REACTIONS (3)
  - ANXIETY [None]
  - HEADACHE [None]
  - INFLUENZA LIKE ILLNESS [None]
